FAERS Safety Report 7203522-3 (Version None)
Quarter: 2010Q4

REPORT INFORMATION
  Report Type: 
  Country: None (occurrence: None)
  Receive Date: 20101230
  Receipt Date: 20101224
  Transmission Date: 20110411
  Serious: Yes (Life-Threatening, Hospitalization)
  Sender: FDA-Public Use
  Company Number: TR-BRISTOL-MYERS SQUIBB COMPANY-15019961

PATIENT
  Age: 44 Year
  Sex: Male
  Weight: 68 kg

DRUGS (3)
  1. CETUXIMAB [Suspect]
     Indication: NON-SMALL CELL LUNG CANCER
     Dosage: CETUXIMAB5MG/ML; RECENT INF:16FEB2010, NO OF INF:7
     Route: 042
     Dates: start: 20100106, end: 20100216
  2. CISPLATIN [Suspect]
     Indication: NON-SMALL CELL LUNG CANCER
     Dosage: DAY 1 OF 21 DAY CYCLE, RECENT INF:16FEB2010; NO OF INF:3
     Route: 042
     Dates: start: 20100106, end: 20100216
  3. GEMCITABINE [Suspect]
     Indication: NON-SMALL CELL LUNG CANCER
     Dosage: DAY 1,8 OF 21 DAY CYCLE;RECENTMINF:16FEB2010; NO OF INF:3
     Route: 042
     Dates: start: 20100106, end: 20100216

REACTIONS (4)
  - DIARRHOEA [None]
  - DYSPEPSIA [None]
  - NAUSEA [None]
  - VOMITING [None]
